FAERS Safety Report 8059383-6 (Version None)
Quarter: 2012Q1

REPORT INFORMATION
  Report Type: 
  Country: None (occurrence: None)
  Receive Date: 20120120
  Receipt Date: 20120118
  Transmission Date: 20120608
  Serious: Yes (Death)
  Sender: FDA-Public Use
  Company Number: US-CELGENEUS-163-21880-11121179

PATIENT
  Sex: Female
  Weight: 63.56 kg

DRUGS (4)
  1. NOVOLOG [Concomitant]
     Indication: DIABETES MELLITUS
     Route: 041
     Dates: start: 20110101
  2. REVLIMID [Suspect]
     Dosage: 15 MILLIGRAM
     Route: 048
     Dates: start: 20111111
  3. ACYCLOVIR [Concomitant]
     Route: 065
     Dates: start: 20060101
  4. SLEEPING PILL [Concomitant]
     Indication: INSOMNIA
     Route: 065
     Dates: start: 20110101

REACTIONS (1)
  - CHRONIC LYMPHOCYTIC LEUKAEMIA [None]
